FAERS Safety Report 9841597 (Version 1)
Quarter: 2013Q4

REPORT INFORMATION
  Report Type: Spontaneous
  Country: US (occurrence: None)
  Receive Date: 20131223
  Receipt Date: 20131223
  Transmission Date: 20140711
  Serious: No
  Sender: FDA-Public Use
  Company Number: 221917LEO

PATIENT
  Age: 92 Year
  Sex: Female

DRUGS (5)
  1. PICATO [Suspect]
     Indication: ACTINIC KERATOSIS
     Dosage: (FOR 3 DAYS), TOPICAL
     Route: 061
     Dates: start: 20130514
  2. VASOTEC (ENALAPRIL MALEATE) [Concomitant]
  3. PREVASTATIN (PRAVASTATIN) [Concomitant]
  4. AMLODIPINE (AMLODIPINE) [Concomitant]
  5. FLECAINIDE (FLECAINIDE) [Concomitant]

REACTIONS (5)
  - Accidental exposure to product [None]
  - Paraesthesia oral [None]
  - Application site vesicles [None]
  - Application site dryness [None]
  - Application site haemorrhage [None]
